FAERS Safety Report 11781076 (Version 2)
Quarter: 2015Q4

REPORT INFORMATION
  Report Type: Spontaneous
  Country: CH (occurrence: CH)
  Receive Date: 20151126
  Receipt Date: 20151204
  Transmission Date: 20160305
  Serious: Yes (Hospitalization, Other)
  Sender: FDA-Public Use
  Company Number: CH-009507513-1511CHE014087

PATIENT
  Age: 86 Year
  Sex: Male

DRUGS (1)
  1. ZOCOR [Suspect]
     Active Substance: SIMVASTATIN
     Dosage: COATED FILM TABLETS, 1 DF, QD
     Route: 048
     Dates: start: 201312, end: 201312

REACTIONS (3)
  - Myopathy [Recovered/Resolved]
  - Blood creatine phosphokinase increased [Recovered/Resolved]
  - Pain in extremity [Recovered/Resolved]

NARRATIVE: CASE EVENT DATE: 201312
